FAERS Safety Report 16799054 (Version 6)
Quarter: 2019Q4

REPORT INFORMATION
  Report Type: Spontaneous
  Country: US (occurrence: US)
  Receive Date: 20190912
  Receipt Date: 20191202
  Transmission Date: 20200122
  Serious: No
  Sender: FDA-Public Use
  Company Number: US-PFIZER INC-2019234859

PATIENT
  Age: 68 Year
  Sex: Female
  Weight: 54 kg

DRUGS (8)
  1. LYRICA [Suspect]
     Active Substance: PREGABALIN
     Indication: CYSTITIS INTERSTITIAL
     Dosage: 100 MG, DAILY (25 MG-1 CAP AT BREAKFAST, 1 CAP AT LUNCH AND 2 CAP AT BEDTIME, 4 CAPSULE A DAY)
     Route: 048
     Dates: start: 201804
  2. LYRICA [Suspect]
     Active Substance: PREGABALIN
     Indication: PAIN
     Dosage: 50 MG, 2X/DAY (2 CAPSULES TWICE A DAY 90 DAYS)
     Route: 048
  3. LYRICA [Suspect]
     Active Substance: PREGABALIN
     Dosage: 50 MG, AS NEEDED (2 CAPSULES THREE TIMES DAILY PRN PAIN 90 DAYS)
     Route: 048
  4. LYRICA [Suspect]
     Active Substance: PREGABALIN
     Dosage: 50 MG, 3X/DAY (THREE TIMES A DAY) PRN (AS NEEDED)
     Route: 048
  5. NOVOLIN [Concomitant]
     Active Substance: INSULIN HUMAN
     Indication: DIABETES MELLITUS
     Dosage: UNK
     Dates: start: 1990
  6. TRAMADOL. [Concomitant]
     Active Substance: TRAMADOL
     Indication: PAIN
     Dosage: UNK, DAILY (4-5 TABLETS A DAY)
     Route: 048
     Dates: start: 201807
  7. AMITRIPTYLINE [Concomitant]
     Active Substance: AMITRIPTYLINE
     Dosage: 20 MG, DAILY
     Route: 048
     Dates: start: 2008
  8. MORPHINE [Concomitant]
     Active Substance: MORPHINE
     Dosage: 15 MG, 2X/DAY
     Route: 048
     Dates: start: 201708

REACTIONS (3)
  - Drug effective for unapproved indication [Unknown]
  - Off label use [Unknown]
  - Frustration tolerance decreased [Recovered/Resolved]
